FAERS Safety Report 5640854-4 (Version None)
Quarter: 2008Q1

REPORT INFORMATION
  Report Type: 
  Country: None (occurrence: None)
  Receive Date: 20080227
  Receipt Date: 20080218
  Transmission Date: 20080703
  Serious: Yes (Other)
  Sender: FDA-Public Use
  Company Number: GB-BAUSCH-2008BL000708

PATIENT
  Age: 64 Year
  Sex: Male

DRUGS (1)
  1. GENTAMICIN [Suspect]
     Indication: DRUG USE FOR UNKNOWN INDICATION
     Route: 042
     Dates: start: 20080201, end: 20080203

REACTIONS (1)
  - HYPOACUSIS [None]
